FAERS Safety Report 9994472 (Version 1)
Quarter: 2014Q1

REPORT INFORMATION
  Report Type: Spontaneous
  Country: US (occurrence: US)
  Receive Date: 20140311
  Receipt Date: 20140311
  Transmission Date: 20141002
  Serious: No
  Sender: FDA-Public Use
  Company Number: US-BIOGENIDEC-2014BI018994

PATIENT
  Sex: Male
  Weight: 81 kg

DRUGS (5)
  1. TECFIDERA [Suspect]
     Indication: PRODUCT USED FOR UNKNOWN INDICATION
  2. ALEVE [Concomitant]
  3. HYDROCODONE [Concomitant]
  4. PROVIGIL [Concomitant]
  5. BACLOFEN [Concomitant]

REACTIONS (2)
  - Blood urine present [Unknown]
  - Pain [Unknown]
